FAERS Safety Report 5209102-3 (Version None)
Quarter: 2007Q1

REPORT INFORMATION
  Report Type: 
  Country: None (occurrence: None)
  Receive Date: 20070111
  Receipt Date: 20070103
  Transmission Date: 20070707
  Serious: Yes (Other)
  Sender: FDA-Public Use
  Company Number: B0453124A

PATIENT
  Age: 41 Year
  Sex: Female

DRUGS (3)
  1. AVANDAMET [Suspect]
     Indication: DIABETES MELLITUS NON-INSULIN-DEPENDENT
     Dosage: SEE DOSAGE TEXT
     Dates: start: 20010101
  2. GLICLAZIDE [Concomitant]
  3. ACARBOSE [Concomitant]

REACTIONS (1)
  - PULMONARY OEDEMA [None]
